FAERS Safety Report 8016419-6 (Version None)
Quarter: 2011Q4

REPORT INFORMATION
  Report Type: 
  Country: None (occurrence: None)
  Receive Date: 20111230
  Receipt Date: 20111221
  Transmission Date: 20120403
  Serious: Yes (Hospitalization)
  Sender: FDA-Public Use
  Company Number: CA-ELI_LILLY_AND_COMPANY-CA201111000267

PATIENT
  Sex: Male
  Weight: 77 kg

DRUGS (5)
  1. ZYPREXA [Suspect]
     Indication: ANXIETY
  2. DIFLUCAN [Concomitant]
  3. VIAGRA [Concomitant]
  4. KALETRA [Concomitant]
     Indication: ANTIRETROVIRAL THERAPY
  5. RALTEGRAVIR [Concomitant]
     Indication: HIV INFECTION
     Dosage: 85 MG, UNK
     Dates: start: 20090219, end: 20091124

REACTIONS (5)
  - OFF LABEL USE [None]
  - NIGHT SWEATS [None]
  - PNEUMONIA [None]
  - CHILLS [None]
  - PYREXIA [None]
